FAERS Safety Report 5425687-6 (Version None)
Quarter: 2007Q3

REPORT INFORMATION
  Report Type: 
  Country: None (occurrence: None)
  Receive Date: 20070824
  Receipt Date: 20070813
  Transmission Date: 20080115
  Serious: Yes (Other)
  Sender: FDA-Public Use
  Company Number: NL-PFIZER INC-2007068264

PATIENT
  Sex: Female
  Weight: 62 kg

DRUGS (3)
  1. EPIRUBICIN HYDROCHLORIDE [Suspect]
     Indication: BREAST CANCER
     Dosage: TEXT:80
  2. DOCETAXEL [Suspect]
     Indication: BREAST CANCER
     Dosage: TEXT:165/125
  3. TAMOXIFEN CITRATE [Suspect]
     Indication: BREAST CANCER
     Dosage: DAILY DOSE:20MG

REACTIONS (1)
  - BREAST CANCER [None]
